FAERS Safety Report 5080524-7 (Version None)
Quarter: 2006Q3

REPORT INFORMATION
  Report Type: 
  Country: None (occurrence: None)
  Receive Date: 20060720
  Receipt Date: 20050610
  Transmission Date: 20061208
  Serious: Yes (Other)
  Sender: FDA-Public Use
  Company Number: 2003147768US

PATIENT
  Age: 45 Year
  Sex: Female

DRUGS (6)
  1. CELEBREX [Suspect]
     Indication: PAIN
     Dosage: 200 MG (200 MG, 1 IN 1 D)
     Dates: start: 19990901
  2. DIGOXIN [Concomitant]
  3. MICRO-K (POTASSIUM CHLORIDE) [Concomitant]
  4. VASOTEC [Concomitant]
  5. LASIX [Concomitant]
  6. COMBIVENT [Concomitant]

REACTIONS (1)
  - BLOOD PRESSURE INCREASED [None]
